FAERS Safety Report 18203701 (Version 1)
Quarter: 2020Q3

REPORT INFORMATION
  Report Type: Spontaneous
  Country: US (occurrence: US)
  Receive Date: 20200827
  Receipt Date: 20200827
  Transmission Date: 20201103
  Serious: No
  Sender: FDA-Public Use
  Company Number: US-TARO-2020TAR00126

PATIENT

DRUGS (4)
  1. TERBINAFINE CREAM 1% [Suspect]
     Active Substance: TERBINAFINE
     Indication: ECZEMA
     Dosage: UNK, BID (MORNING AND NIGHT TO FEET)
     Route: 061
     Dates: start: 20200121, end: 20200121
  2. TERBINAFINE CREAM 1% [Suspect]
     Active Substance: TERBINAFINE
     Dosage: UNK, BID (MORNING AND NIGHT TO FEET)
     Route: 061
     Dates: start: 20200123, end: 20200123
  3. PREDNISONE. [Concomitant]
     Active Substance: PREDNISONE
     Indication: PRODUCT USED FOR UNKNOWN INDICATION
     Dosage: UNK, (TAPERING DOSE)
     Route: 065
     Dates: start: 20200119
  4. BACTRIM DS [Concomitant]
     Active Substance: SULFAMETHOXAZOLE\TRIMETHOPRIM
     Indication: PRODUCT USED FOR UNKNOWN INDICATION
     Dosage: UNK
     Route: 065
     Dates: start: 20200118

REACTIONS (3)
  - Pain of skin [Not Recovered/Not Resolved]
  - Burning sensation [Not Recovered/Not Resolved]
  - Skin tightness [Not Recovered/Not Resolved]

NARRATIVE: CASE EVENT DATE: 20200121
